FAERS Safety Report 8515695-0 (Version None)
Quarter: 2012Q3

REPORT INFORMATION
  Report Type: 
  Country: None (occurrence: None)
  Receive Date: 20120717
  Receipt Date: 20120713
  Transmission Date: 20120928
  Serious: Yes (Other)
  Sender: FDA-Public Use
  Company Number: PHHY2012AR060741

PATIENT
  Sex: Female

DRUGS (1)
  1. EXFORGE [Suspect]
     Indication: HYPERTENSION
     Dosage: 1 DF (80 MG VAL/ 5 MG AMLO) DAILY
     Dates: start: 20110101

REACTIONS (5)
  - ROAD TRAFFIC ACCIDENT [None]
  - CONTUSION [None]
  - NASOPHARYNGITIS [None]
  - HYPERSENSITIVITY [None]
  - INJURY [None]
